FAERS Safety Report 4561341-0 (Version None)
Quarter: 2005Q1

REPORT INFORMATION
  Report Type: 
  Country: None (occurrence: None)
  Receive Date: 20050126
  Receipt Date: 20050114
  Transmission Date: 20050727
  Serious: Yes (Disabling)
  Sender: FDA-Public Use
  Company Number: US-GLAXOSMITHKLINE-A0540734A

PATIENT
  Age: 36 Year
  Sex: Male
  Weight: 106 kg

DRUGS (1)
  1. DEBROX DROPS [Suspect]
     Indication: CERUMEN IMPACTION
     Route: 001
     Dates: start: 20050113

REACTIONS (3)
  - DEAFNESS UNILATERAL [None]
  - EAR DISCOMFORT [None]
  - INSOMNIA [None]
